FAERS Safety Report 11780204 (Version 1)
Quarter: 2015Q4

REPORT INFORMATION
  Report Type: Spontaneous
  Country: US (occurrence: US)
  Receive Date: 20151126
  Receipt Date: 20151126
  Transmission Date: 20160305
  Serious: No
  Sender: FDA-Public Use
  Company Number: US-JNJFOC-20151009130

PATIENT
  Sex: Female
  Weight: 65.77 kg

DRUGS (4)
  1. BENADRYL [Concomitant]
     Active Substance: DIPHENHYDRAMINE HYDROCHLORIDE
     Indication: ADVERSE DRUG REACTION
     Route: 042
  2. TYLENOL [Suspect]
     Active Substance: ACETAMINOPHEN
     Indication: ADVERSE DRUG REACTION
     Route: 048
     Dates: start: 2015
  3. TYLENOL [Suspect]
     Active Substance: ACETAMINOPHEN
     Indication: MALAISE
     Route: 048
     Dates: start: 2015
  4. BENADRYL [Concomitant]
     Active Substance: DIPHENHYDRAMINE HYDROCHLORIDE
     Indication: MALAISE
     Route: 042

REACTIONS (1)
  - Product use issue [Unknown]
